FAERS Safety Report 14176069 (Version 2)
Quarter: 2017Q4

REPORT INFORMATION
  Report Type: Spontaneous
  Country: US (occurrence: US)
  Receive Date: 20171109
  Receipt Date: 20171114
  Transmission Date: 20180321
  Serious: No
  Sender: FDA-Public Use
  Company Number: US-MISSION PHARMACAL COMPANY-2033722

PATIENT
  Age: 29 Year
  Sex: Female

DRUGS (1)
  1. THIOLA [Suspect]
     Active Substance: TIOPRONIN
     Indication: NEPHROLITHIASIS
     Route: 065
     Dates: start: 20150530

REACTIONS (12)
  - Drug dose omission [Recovered/Resolved]
  - Lower respiratory tract congestion [Unknown]
  - Pain in extremity [Unknown]
  - Therapy change [None]
  - Oesophageal disorder [Unknown]
  - Rash [Unknown]
  - Pain in extremity [None]
  - Reflux gastritis [Unknown]
  - Incorrect dose administered [Not Recovered/Not Resolved]
  - Gastritis [None]
  - Neurological symptom [Unknown]
  - Pruritus [Unknown]
